FAERS Safety Report 20011163 (Version 2)
Quarter: 2022Q1

REPORT INFORMATION
  Report Type: Spontaneous
  Country: US (occurrence: US)
  Receive Date: 20211028
  Receipt Date: 20220112
  Transmission Date: 20220423
  Serious: Yes (Hospitalization)
  Sender: FDA-Public Use
  Company Number: US-FRESENIUS KABI-FK202110995

PATIENT
  Age: 13 Day
  Sex: Male
  Weight: 1.3 kg

DRUGS (3)
  1. OMEGAVEN [Suspect]
     Active Substance: FISH OIL
     Indication: Parenteral nutrition
     Route: 042
     Dates: start: 20210917, end: 20211012
  2. SMOFLIPID [Suspect]
     Active Substance: FISH OIL\MEDIUM-CHAIN TRIGLYCERIDES\OLIVE OIL\SOYBEAN OIL
     Indication: Parenteral nutrition
     Dosage: UNKNOWN
     Route: 042
     Dates: start: 20210901, end: 20210917
  3. IRON DEXTRAN [Suspect]
     Active Substance: IRON DEXTRAN
     Indication: Product used for unknown indication
     Dosage: ORDERED IN THE 2-IN-1 BAG (ADDED TO THE TPN BAG)
     Route: 065
     Dates: start: 20210922, end: 20211009

REACTIONS (4)
  - Device occlusion [Recovered/Resolved]
  - Labelled drug-drug interaction issue [Recovered/Resolved]
  - Intentional product use issue [Recovered/Resolved]
  - No adverse event [None]

NARRATIVE: CASE EVENT DATE: 20210901
